FAERS Safety Report 10019742 (Version 3)
Quarter: 2014Q2

REPORT INFORMATION
  Report Type: Spontaneous
  Country: US (occurrence: US)
  Receive Date: 20140318
  Receipt Date: 20140618
  Transmission Date: 20141212
  Serious: No
  Sender: FDA-Public Use
  Company Number: US-GALDERMA-US14000070

PATIENT
  Age: 66 Year
  Sex: Female
  Weight: 92 kg

DRUGS (6)
  1. MIRVASO (BRIMONIDINE) TOPICAL GEL, 0.33% [Suspect]
     Indication: ROSACEA
     Dosage: 0.33%
     Route: 061
     Dates: start: 20131211, end: 20131219
  2. ESTEE LAUDER FACE CREAM [Concomitant]
     Indication: DRY SKIN PROPHYLAXIS
     Route: 061
  3. GLIMEPIRIDE (AMARYL) [Concomitant]
     Indication: DIABETES MELLITUS
     Route: 048
  4. AMLODIPINE [Concomitant]
     Indication: HYPERTENSION
     Route: 048
  5. NYSTATIN TRIAMCINOLONE [Concomitant]
  6. OXYCODONE-ACETAMINOPHEN [Concomitant]

REACTIONS (9)
  - Condition aggravated [Recovered/Resolved]
  - Muscle spasms [Recovered/Resolved]
  - Rash [Recovered/Resolved]
  - Vision blurred [Recovered/Resolved]
  - Nausea [Recovered/Resolved]
  - Flushing [Recovered/Resolved]
  - Headache [Recovered/Resolved]
  - Pruritus [Recovered/Resolved]
  - Skin burning sensation [Recovered/Resolved]
